FAERS Safety Report 25085316 (Version 3)
Quarter: 2025Q2

REPORT INFORMATION
  Report Type: Spontaneous
  Country: ES (occurrence: ES)
  Receive Date: 20250317
  Receipt Date: 20250401
  Transmission Date: 20250716
  Serious: Yes (Other)
  Sender: MYLAN
  Company Number: ES-IPSEN Group, Research and Development-2025-04173

PATIENT
  Sex: Female
  Weight: 55 kg

DRUGS (7)
  1. SUNITINIB [Suspect]
     Active Substance: SUNITINIB
     Indication: Papillary renal cell carcinoma
  2. CABOMETYX [Suspect]
     Active Substance: CABOZANTINIB S-MALATE
     Indication: Papillary renal cell carcinoma
     Dosage: 40 MILLIGRAM, QD
     Dates: start: 202207
  3. CABOMETYX [Suspect]
     Active Substance: CABOZANTINIB S-MALATE
  4. AXITINIB [Suspect]
     Active Substance: AXITINIB
     Indication: Papillary renal cell carcinoma
  5. LORAZEPAM [Concomitant]
     Active Substance: LORAZEPAM
     Dosage: 1 MILLIGRAM, QD (0-0-1)
  6. TORSEMIDE [Concomitant]
     Active Substance: TORSEMIDE
     Dosage: 5 MILLIGRAM, QD (1-0-0)
  7. CALCIFEDIOL [Concomitant]
     Active Substance: CALCIFEDIOL

REACTIONS (9)
  - Metastases to liver [Unknown]
  - Metastases to spleen [Unknown]
  - Hypothyroidism [Unknown]
  - Splenic lesion [Unknown]
  - Dysgeusia [Unknown]
  - Diarrhoea [Recovered/Resolved]
  - Asthenia [Unknown]
  - Mucosal inflammation [Unknown]
  - Off label use [Unknown]

NARRATIVE: CASE EVENT DATE: 20231001
